FAERS Safety Report 4737983-6 (Version None)
Quarter: 2005Q3

REPORT INFORMATION
  Report Type: 
  Country: None (occurrence: None)
  Receive Date: 20050809
  Receipt Date: 20050715
  Transmission Date: 20060218
  Serious: Yes (Other)
  Sender: FDA-Public Use
  Company Number: PHNU2005DE02546

PATIENT
  Sex: Male
  Weight: 68 kg

DRUGS (8)
  1. ZOMETA [Suspect]
     Indication: PLASMACYTOMA
     Dosage: 4 MG, QMO
     Route: 042
     Dates: start: 20031216, end: 20050701
  2. SALINE [Concomitant]
     Dosage: 100 ML, QMO
     Route: 042
     Dates: start: 20031201
  3. CHEMOTHERAPEUTICS,OTHER [Concomitant]
  4. MARCUMAR [Concomitant]
  5. VINCRISTINE [Concomitant]
     Dosage: 5MG
     Dates: start: 20031201, end: 20050501
  6. ADRIBLASTIN [Concomitant]
     Dosage: 16MG
     Dates: start: 20031201, end: 20050501
  7. DEXAMETHASONE [Concomitant]
     Dosage: 40MG
     Dates: start: 20031201, end: 20050501
  8. VELCADE [Concomitant]
     Dates: start: 20050601

REACTIONS (6)
  - ASEPTIC NECROSIS BONE [None]
  - BONE DISORDER [None]
  - IMPAIRED HEALING [None]
  - JAW DISORDER [None]
  - OSTEONECROSIS [None]
  - TOOTH EXTRACTION [None]
